FAERS Safety Report 4930801-2 (Version None)
Quarter: 2006Q1

REPORT INFORMATION
  Report Type: 
  Country: None (occurrence: None)
  Receive Date: 20060227
  Receipt Date: 20060214
  Transmission Date: 20060701
  Serious: Yes (Hospitalization)
  Sender: FDA-Public Use
  Company Number: 2005161947

PATIENT
  Age: 12 Year
  Sex: Male
  Weight: 12.8 kg

DRUGS (2)
  1. GENOTROPIN [Suspect]
     Indication: HYPOPITUITARISM
     Dosage: 0.8 MG (2.8 MG, DAILY) SUBCUTANEOUS; SEE IMAGE
     Route: 058
     Dates: start: 20051018, end: 20051023
  2. GENOTROPIN [Suspect]
     Indication: HYPOPITUITARISM
     Dosage: 0.8 MG (2.8 MG, DAILY) SUBCUTANEOUS; SEE IMAGE
     Route: 058
     Dates: start: 20051116, end: 20051124

REACTIONS (2)
  - HEADACHE [None]
  - VOMITING [None]
